FAERS Safety Report 8330160-1 (Version None)
Quarter: 2012Q2

REPORT INFORMATION
  Report Type: 
  Country: None (occurrence: None)
  Receive Date: 20120502
  Receipt Date: 20120430
  Transmission Date: 20120825
  Serious: No
  Sender: FDA-Public Use
  Company Number: US-BAYER-2012-042384

PATIENT
  Age: 44 Year
  Sex: Female

DRUGS (1)
  1. AVELOX [Suspect]
     Indication: PNEUMONIA
     Dosage: 400MG USED X 10 DAYS
     Route: 048
     Dates: start: 20120408

REACTIONS (4)
  - MYALGIA [None]
  - NAUSEA [None]
  - ARTHRALGIA [None]
  - DIZZINESS [None]
